FAERS Safety Report 23163210 (Version 1)
Quarter: 2023Q4

REPORT INFORMATION
  Report Type: Spontaneous
  Country: US (occurrence: US)
  Receive Date: 20231109
  Receipt Date: 20231109
  Transmission Date: 20240109
  Serious: Yes (Hospitalization, Other)
  Sender: FDA-Public Use
  Company Number: US-INSMED, INC.-2023-02290-US

PATIENT
  Sex: Male

DRUGS (1)
  1. ARIKAYCE [Suspect]
     Active Substance: AMIKACIN
     Indication: Pneumonia
     Dosage: 590 MILLIGRAM, QD
     Route: 055
     Dates: start: 20220525, end: 2023

REACTIONS (2)
  - Pneumonia [Unknown]
  - Off label use [Unknown]
